FAERS Safety Report 10197294 (Version 2)
Quarter: 2014Q2

REPORT INFORMATION
  Report Type: Report from Study
  Country: CA (occurrence: CA)
  Receive Date: 20140527
  Receipt Date: 20140607
  Transmission Date: 20141212
  Serious: Yes (Other)
  Sender: FDA-Public Use
  Company Number: PHHY2014CA064676

PATIENT
  Age: 64 Year
  Sex: Female

DRUGS (5)
  1. ACLASTA [Suspect]
     Indication: OSTEOPOROSIS
     Dosage: 5 MG (5MG/100ML), YEARLY
     Route: 042
     Dates: start: 20110610
  2. ACLASTA [Suspect]
     Dosage: 5 MG (5MG/100ML), YEARLY
     Route: 042
     Dates: start: 20120608
  3. ACLASTA [Suspect]
     Dosage: 5 MG (5MG/100ML), YEARLY
     Route: 042
     Dates: start: 20130604
  4. SYNTHROID [Concomitant]
     Dosage: 150 UG, DAILY
     Route: 048
  5. ZOPICLONE [Concomitant]
     Dosage: 1.5 DF (1/2- 1 TABLET), DAILY
     Route: 048

REACTIONS (2)
  - Upper limb fracture [Recovered/Resolved]
  - Fall [Recovered/Resolved]
